FAERS Safety Report 5249393-6 (Version None)
Quarter: 2007Q1

REPORT INFORMATION
  Report Type: 
  Country: None (occurrence: None)
  Receive Date: 20070228
  Receipt Date: 20060928
  Transmission Date: 20070707
  Serious: No
  Sender: FDA-Public Use
  Company Number: US-GLAXOSMITHKLINE-A0621975A

PATIENT
  Sex: Female

DRUGS (2)
  1. VALTREX [Suspect]
     Indication: HERPES VIRUS INFECTION
     Route: 048
  2. ABREVA [Suspect]
     Indication: HERPES VIRUS INFECTION
     Route: 061

REACTIONS (3)
  - CHEILITIS [None]
  - HYPERSENSITIVITY [None]
  - MOUTH ULCERATION [None]
